FAERS Safety Report 4996321-4 (Version None)
Quarter: 2006Q2

REPORT INFORMATION
  Report Type: 
  Country: None (occurrence: None)
  Receive Date: 20060505
  Receipt Date: 20060420
  Transmission Date: 20061013
  Serious: Yes (Other)
  Sender: FDA-Public Use
  Company Number: 2005BL003935

PATIENT
  Age: 74 Year
  Sex: Female
  Weight: 67 kg

DRUGS (2)
  1. FLUOCINOLONE ACETONIDE [Suspect]
     Indication: CHOROIDITIS
     Dosage: LEFT EYE
     Dates: start: 20030403
  2. VERAPAMIL [Concomitant]

REACTIONS (3)
  - OCULAR HYPERTENSION [None]
  - OPTIC ATROPHY [None]
  - OPTIC NEUROPATHY [None]
